FAERS Safety Report 11276524 (Version 1)
Quarter: 2015Q3

REPORT INFORMATION
  Report Type: Spontaneous
  Country: CN (occurrence: CN)
  Receive Date: 20150716
  Receipt Date: 20150716
  Transmission Date: 20151125
  Serious: Yes (Hospitalization, Other)
  Sender: FDA-Public Use
  Company Number: CN-ELI_LILLY_AND_COMPANY-CN201507002108

PATIENT
  Sex: Female

DRUGS (4)
  1. HUMULIN R [Suspect]
     Active Substance: INSULIN HUMAN
     Indication: DIABETES MELLITUS
     Dosage: 14 U, EACH MORNING
     Route: 058
     Dates: start: 201407, end: 201408
  2. HUMULIN R [Suspect]
     Active Substance: INSULIN HUMAN
     Dosage: 12 U, EACH EVENING
     Route: 058
     Dates: start: 201407, end: 201408
  3. HUMALOG MIX75/25 [Suspect]
     Active Substance: INSULIN LISPRO
     Dosage: 10 U, EACH EVENING
     Route: 058
     Dates: start: 201408, end: 20150627
  4. HUMALOG MIX75/25 [Suspect]
     Active Substance: INSULIN LISPRO
     Indication: DIABETES MELLITUS
     Dosage: 12 U, EACH MORNING
     Route: 058
     Dates: start: 201408, end: 20150627

REACTIONS (3)
  - Peripheral arterial occlusive disease [Recovering/Resolving]
  - Drug dose omission [Unknown]
  - Drug dose omission [Unknown]

NARRATIVE: CASE EVENT DATE: 20150627
